FAERS Safety Report 4808527-5 (Version None)
Quarter: 2005Q4

REPORT INFORMATION
  Report Type: 
  Country: None (occurrence: None)
  Receive Date: 20051021
  Receipt Date: 20050908
  Transmission Date: 20060501
  Serious: Yes (Other)
  Sender: FDA-Public Use
  Company Number: DE_050916911

PATIENT
  Age: 68 Year
  Sex: Female

DRUGS (4)
  1. ZYPREXA [Suspect]
     Indication: INSOMNIA
     Dosage: 2.5 MG DAY
     Dates: start: 20050101
  2. ZOLPIDEM TARTRATE [Concomitant]
  3. LORZAAR                    (LOSARTAN POTASSIUM) [Concomitant]
  4. NEBIVOLOL HCL [Concomitant]

REACTIONS (2)
  - DEEP VEIN THROMBOSIS [None]
  - SELF-MEDICATION [None]
